FAERS Safety Report 10686080 (Version 2)
Quarter: 2015Q1

REPORT INFORMATION
  Report Type: Spontaneous
  Country: US (occurrence: US)
  Receive Date: 20141231
  Receipt Date: 20150123
  Transmission Date: 20150720
  Serious: Yes (Other)
  Sender: FDA-Public Use
  Company Number: US-BRISTOL-MYERS SQUIBB COMPANY-BMS-2014-003687

PATIENT
  Age: 61 Year
  Sex: Male

DRUGS (2)
  1. BARACLUDE [Suspect]
     Active Substance: ENTECAVIR
     Indication: HEPATITIS B
     Dosage: 0.5 MG, UNK
     Route: 048
     Dates: start: 200904
  2. BARACLUDE [Suspect]
     Active Substance: ENTECAVIR
     Dosage: N/A

REACTIONS (2)
  - Drug ineffective [Unknown]
  - Viral load increased [Unknown]
